FAERS Safety Report 21760439 (Version 1)
Quarter: 2022Q4

REPORT INFORMATION
  Report Type: Spontaneous
  Country: NO (occurrence: None)
  Receive Date: 20221221
  Receipt Date: 20221221
  Transmission Date: 20230113
  Serious: Yes (Other)
  Sender: FDA-Public Use
  Company Number: 2022A406879

PATIENT
  Age: 67 Year
  Sex: Male

DRUGS (8)
  1. EVUSHELD [Suspect]
     Active Substance: CILGAVIMAB\TIXAGEVIMAB
     Indication: Immunodeficiency
     Dosage: 150 MG + 150 MG
     Route: 030
     Dates: start: 20221125
  2. VELCADE [Suspect]
     Active Substance: BORTEZOMIB
     Indication: Plasma cell myeloma
     Dosage: PART OF CHEMOTHERAPEUTICAL REGIMEN. LAST DOSE WAS GIVEN 18.11.20222.8MG UNKNOWN
     Route: 058
     Dates: start: 20221118, end: 20221118
  3. DARZALEX [Suspect]
     Active Substance: DARATUMUMAB
     Indication: Plasma cell myeloma
     Dosage: PART OF CHEMOTHERAPEUTICAL REGIMEN, LAST DOSE BEFORE THE SUSPECTED ADVERSE EFFECT WAS 22.11.20221...
     Route: 065
     Dates: start: 20221122, end: 20221122
  4. DEXAMETASON ABCUR [Concomitant]
     Indication: Plasma cell myeloma
     Dosage: DOSE ACCORDING TO CHEMOTHERAPEUTIC REGIMEN
     Route: 065
     Dates: start: 20221122, end: 20221122
  5. DEXAMETASON ABCUR [Concomitant]
     Indication: Plasma cell myeloma
     Dosage: DOSE ACCORDING TO CHEMOTHERAPEUTIC REGIMEN
     Route: 065
     Dates: start: 20221124, end: 20221124
  6. DEXAMETASON ABCUR [Concomitant]
     Indication: Plasma cell myeloma
     Dosage: DOSE ACCORDING TO CHEMOTHERAPEUTIC REGIMEN
     Route: 065
     Dates: start: 20221123, end: 20221123
  7. VALTREX [Concomitant]
     Active Substance: VALACYCLOVIR HYDROCHLORIDE
     Indication: Antiviral prophylaxis
     Route: 065
  8. PANTOPRAZOLE PENSA [Concomitant]
     Indication: Prophylaxis against gastrointestinal ulcer
     Route: 065

REACTIONS (1)
  - Cutaneous vasculitis [Unknown]

NARRATIVE: CASE EVENT DATE: 20221128
